FAERS Safety Report 9824664 (Version 2)
Quarter: 2014Q1

REPORT INFORMATION
  Report Type: Spontaneous
  Country: US (occurrence: US)
  Receive Date: 20140117
  Receipt Date: 20140227
  Transmission Date: 20141002
  Serious: Yes (Other)
  Sender: FDA-Public Use
  Company Number: US-ASTRAZENECA-2014SE01935

PATIENT
  Age: 66 Year
  Sex: Female
  Weight: 81.2 kg

DRUGS (9)
  1. SYMBICORT [Suspect]
     Indication: ASTHMA
     Dosage: 160/ 4.5 MCG 2 PUFFS BID
     Route: 055
  2. SYMBICORT [Suspect]
     Indication: ASTHMA
     Dosage: 1 PUFF IN THE MORNING
     Route: 055
  3. LISINOPRIL [Suspect]
     Indication: BLOOD PRESSURE ABNORMAL
     Route: 048
  4. OMEPRAZOLE [Suspect]
     Indication: GASTRIC DISORDER
     Route: 048
  5. IRON [Concomitant]
     Indication: MINERAL SUPPLEMENTATION
     Dosage: PRN
  6. PREDNISONE [Concomitant]
     Dosage: PRN
  7. OXYBUTNIN [Concomitant]
     Indication: BLADDER DISORDER
     Dosage: NA
  8. PROVASTATIN [Concomitant]
     Indication: BLOOD CHOLESTEROL ABNORMAL
  9. ADVAIR [Concomitant]

REACTIONS (4)
  - Cataract [Recovered/Resolved]
  - Surgical failure [Not Recovered/Not Resolved]
  - Cough [Unknown]
  - Intentional drug misuse [Unknown]
